FAERS Safety Report 9617438 (Version 1)
Quarter: 2013Q4

REPORT INFORMATION
  Report Type: Spontaneous
  Country: US (occurrence: None)
  Receive Date: 20131009
  Receipt Date: 20131009
  Transmission Date: 20140711
  Serious: Yes (Hospitalization, Other)
  Sender: FDA-Public Use
  Company Number: 2012-003977

PATIENT
  Age: 69 Year
  Sex: Female
  Weight: 90.9 kg

DRUGS (15)
  1. ACTONEL (RISEDRONATE SODIUM) TABLET, 35MG [Suspect]
     Indication: OSTEOPOROSIS
     Dosage: 35 MG ONCE WEEKLY, ORAL
     Route: 048
     Dates: start: 2002, end: 2013
  2. LEVOTHYROXIN (LEVOTHYROXINE SODIUM) [Concomitant]
  3. METFORMIN ER (METFORMIN HYDROCHLORIDE) [Concomitant]
  4. ASPIRIN (ACETYLSALICYLIC ACID) [Concomitant]
  5. HYDROCHLOROTHIAZIDE (HYROCHLOROTHIAZIDE) [Concomitant]
  6. DILTIAZEM [Concomitant]
  7. VALSARTAN (VALSARTAN) [Concomitant]
  8. BYETTA (EXENATIDE) [Concomitant]
  9. CELEBREX (CELECOXIB) [Concomitant]
  10. PROTONIX (PANTOPRAZOLE SODIUM SESQUIHYDRATE) [Concomitant]
  11. MULTIVITAMIN /01229101/(VITAMINS NOS) [Concomitant]
  12. FOLIC ACID (FOLIC ACID) [Concomitant]
  13. VITAMIN C/00008001/(VITAMINS NOS) [Concomitant]
  14. VIACTIV /00751501/ (CALCIUM) [Concomitant]
  15. VITAMIN D / 00318501/(COLECALCIFEROL) [Concomitant]

REACTIONS (4)
  - Fracture displacement [None]
  - Periprosthetic fracture [None]
  - Pathological fracture [None]
  - Fracture nonunion [None]
